FAERS Safety Report 11164752 (Version 1)
Quarter: 2015Q2

REPORT INFORMATION
  Report Type: Spontaneous
  Country: DE (occurrence: FR)
  Receive Date: 20150604
  Receipt Date: 20150604
  Transmission Date: 20150821
  Serious: Yes (Hospitalization)
  Sender: FDA-Public Use
  Company Number: DE-ACTELION-A-US2015-118521

PATIENT
  Age: 77 Year
  Sex: Male

DRUGS (3)
  1. TAVANIC [Suspect]
     Active Substance: LEVOFLOXACIN
     Indication: ARTHRITIS BACTERIAL
     Dosage: 750 MG, UNK
     Route: 048
     Dates: start: 20150213, end: 20150224
  2. VENTAVIS [Suspect]
     Active Substance: ILOPROST
     Indication: PULMONARY ARTERIAL HYPERTENSION
     Dosage: 5 MCG, 5ID
     Route: 055
     Dates: start: 20150205
  3. FUCIDINE [Suspect]
     Active Substance: FUSIDIC ACID
     Indication: ARTHRITIS BACTERIAL
     Dosage: 500 MG, UNK
     Route: 048
     Dates: start: 20150213, end: 20150224

REACTIONS (1)
  - Jaundice [Unknown]

NARRATIVE: CASE EVENT DATE: 20150216
